FAERS Safety Report 11910645 (Version 1)
Quarter: 2016Q1

REPORT INFORMATION
  Report Type: Report from Study
  Country: CA (occurrence: CA)
  Receive Date: 20160112
  Receipt Date: 20160112
  Transmission Date: 20160526
  Serious: Yes (Hospitalization)
  Sender: FDA-Public Use
  Company Number: PHHY2015CA017239

PATIENT
  Sex: Male

DRUGS (1)
  1. GLEEVEC [Suspect]
     Active Substance: IMATINIB MESYLATE
     Indication: GASTROINTESTINAL STROMAL TUMOUR
     Dosage: 400 MG, QD
     Route: 048
     Dates: start: 20140720, end: 201511

REACTIONS (8)
  - Dyspnoea [Unknown]
  - Stress [Unknown]
  - Pneumothorax [Unknown]
  - Dysphagia [Unknown]
  - Gait disturbance [Recovering/Resolving]
  - Pulmonary oedema [Unknown]
  - Vomiting [Unknown]
  - Peripheral swelling [Recovering/Resolving]
